FAERS Safety Report 7692478-5 (Version None)
Quarter: 2011Q3

REPORT INFORMATION
  Report Type: 
  Country: None (occurrence: None)
  Receive Date: 20110818
  Receipt Date: 20090414
  Transmission Date: 20111222
  Serious: Yes (Other)
  Sender: FDA-Public Use
  Company Number: US-PFIZER INC-2009182538

PATIENT
  Sex: Female

DRUGS (2)
  1. ARGATROBAN [Suspect]
  2. ARGATROBAN [Suspect]
     Indication: PLATELET COUNT DECREASED
     Dosage: 2 MCG/KG/MIN, UNK
     Route: 042
     Dates: start: 20090311

REACTIONS (2)
  - INTERNATIONAL NORMALISED RATIO INCREASED [None]
  - RED BLOOD CELL COUNT DECREASED [None]
